FAERS Safety Report 24032427 (Version 1)
Quarter: 2024Q3

REPORT INFORMATION
  Report Type: Spontaneous
  Country: IT (occurrence: IT)
  Receive Date: 20240701
  Receipt Date: 20240701
  Transmission Date: 20241016
  Serious: Yes (Hospitalization, Other)
  Sender: NOVITIUM PHARMA
  Company Number: IT-NOVITIUMPHARMA-2024ITNVP01109

PATIENT
  Age: 64 Year
  Sex: Female

DRUGS (12)
  1. PREDNISONE [Suspect]
     Active Substance: PREDNISONE
     Indication: Asthma
     Route: 048
  2. PREDNISONE [Suspect]
     Active Substance: PREDNISONE
     Indication: Chronic rhinosinusitis with nasal polyps
     Route: 048
  3. PREDNISONE [Suspect]
     Active Substance: PREDNISONE
     Indication: Eosinophilia
  4. ALBUTEROL [Concomitant]
     Active Substance: ALBUTEROL
     Indication: Asthma
  5. ALBUTEROL [Concomitant]
     Active Substance: ALBUTEROL
     Indication: Chronic rhinosinusitis with nasal polyps
  6. BECLOMETHASONE\FORMOTEROL [Concomitant]
     Active Substance: BECLOMETHASONE\FORMOTEROL
     Indication: Asthma
     Dosage: 800/24 UG/DAY
  7. BECLOMETHASONE\FORMOTEROL [Concomitant]
     Active Substance: BECLOMETHASONE\FORMOTEROL
     Indication: Chronic rhinosinusitis with nasal polyps
  8. Tiotropium-bromide [Concomitant]
     Indication: Chronic rhinosinusitis with nasal polyps
     Dosage: 5 UG/DAY
  9. Tiotropium-bromide [Concomitant]
     Indication: Asthma
  10. METHYLPREDNISOLONE [Concomitant]
     Active Substance: METHYLPREDNISOLONE
     Indication: Eosinophilia
     Dosage: HIGH DOSE
  11. MOMETASONE [Concomitant]
     Active Substance: MOMETASONE
     Indication: Chronic rhinosinusitis with nasal polyps
  12. MOMETASONE [Concomitant]
     Active Substance: MOMETASONE
     Indication: Asthma

REACTIONS (2)
  - Cardiac ventricular thrombosis [Recovering/Resolving]
  - Drug ineffective [Unknown]
